FAERS Safety Report 9441161 (Version 1)
Quarter: 2013Q3

REPORT INFORMATION
  Report Type: Spontaneous
  Country: GB (occurrence: GB)
  Receive Date: 20130805
  Receipt Date: 20130805
  Transmission Date: 20140515
  Serious: Yes (Hospitalization)
  Sender: FDA-Public Use
  Company Number: GB-UCBSA-093340

PATIENT
  Age: 27 Year
  Sex: Female

DRUGS (4)
  1. KEPPRA [Suspect]
     Dosage: 2500
  2. CLONAZEPAM [Concomitant]
     Dosage: 1
  3. CLONAZEPAM [Concomitant]
     Dosage: DOSE INCREASED: 2
  4. TEGRETOL [Concomitant]
     Dosage: 800

REACTIONS (1)
  - Vomiting [Unknown]
